FAERS Safety Report 16973911 (Version 2)
Quarter: 2020Q1

REPORT INFORMATION
  Report Type: Spontaneous
  Country: GB (occurrence: GB)
  Receive Date: 20191030
  Receipt Date: 20200117
  Transmission Date: 20200409
  Serious: Yes (Hospitalization)
  Sender: FDA-Public Use
  Company Number: GB-ACCORD-158921

PATIENT
  Age: 81 Year
  Sex: Female

DRUGS (12)
  1. BISOPROLOL [Suspect]
     Active Substance: BISOPROLOL
     Indication: PRODUCT USED FOR UNKNOWN INDICATION
     Dosage: IN THE MORNING
  2. ATORVASTATIN [Concomitant]
     Active Substance: ATORVASTATIN
     Dosage: AT NIGHT
  3. VITAMIN B COMPOUND A A H PHARMACEUTICALS LTD [Concomitant]
     Dosage: IN THE MORNING
  4. WARFARIN [Concomitant]
     Active Substance: WARFARIN
     Dosage: 5MG ON MONDAY + 4MG THE REST OF THE WEEK
  5. PYRIDOXINE [Concomitant]
     Active Substance: PYRIDOXINE
  6. SENNA ALEXANDRINA [Concomitant]
     Active Substance: SENNA LEAF
     Dosage: 15 MG, QD, AT NIGHT
  7. SERTRALINE [Suspect]
     Active Substance: SERTRALINE HYDROCHLORIDE
     Indication: PRODUCT USED FOR UNKNOWN INDICATION
     Dosage: IN THE MORNING
  8. NOVORAPID [Concomitant]
     Active Substance: INSULIN ASPART
     Dosage: 16 UNITS 9AM, 14 UNITS 12 NOON, 12 UNITS 5PM (100UNITS/ML )
  9. HUMULIN L [Concomitant]
     Active Substance: INSULIN HUMAN
     Dosage: 12 NOON (100UNITS/ML)
  10. LANSOPRAZOLE. [Concomitant]
     Active Substance: LANSOPRAZOLE
     Dosage: IN THE MORNING
  11. LIDOCAINE. [Concomitant]
     Active Substance: LIDOCAINE
     Dosage: AT NIGHT
  12. FOLIC ACID. [Concomitant]
     Active Substance: FOLIC ACID
     Dosage: IN THE MORNING

REACTIONS (5)
  - Electrocardiogram QT prolonged [Recovered/Resolved]
  - Somnolence [Unknown]
  - Pneumonia aspiration [Unknown]
  - Productive cough [Unknown]
  - Blood glucose decreased [Unknown]
